FAERS Safety Report 11134308 (Version 3)
Quarter: 2015Q4

REPORT INFORMATION
  Report Type: Spontaneous
  Country: CA (occurrence: CA)
  Receive Date: 20150525
  Receipt Date: 20151123
  Transmission Date: 20160304
  Serious: Yes (Other)
  Sender: FDA-Public Use
  Company Number: CA-ROCHE-1581598

PATIENT
  Age: 12 Year
  Sex: Female
  Weight: 57 kg

DRUGS (6)
  1. XOLAIR [Suspect]
     Active Substance: OMALIZUMAB
     Indication: ASTHMA
     Route: 058
     Dates: start: 20131210
  2. CLARITIN [Concomitant]
     Active Substance: LORATADINE
  3. XOLAIR [Suspect]
     Active Substance: OMALIZUMAB
     Route: 058
     Dates: start: 20150407
  4. SINGULAIR [Concomitant]
     Active Substance: MONTELUKAST SODIUM
  5. BRICANYL [Concomitant]
     Active Substance: TERBUTALINE SULFATE
  6. ASMANEX [Concomitant]
     Active Substance: MOMETASONE FUROATE

REACTIONS (9)
  - Hypersensitivity [Unknown]
  - Headache [Unknown]
  - Asthma [Unknown]
  - Gastric disorder [Unknown]
  - Oropharyngeal pain [Recovering/Resolving]
  - Body temperature decreased [Unknown]
  - Weight increased [Unknown]
  - Food allergy [Recovering/Resolving]
  - Urticaria [Unknown]

NARRATIVE: CASE EVENT DATE: 20150323
